FAERS Safety Report 8938409 (Version 1)
Quarter: 2012Q4

REPORT INFORMATION
  Report Type: 
  Country: DE (occurrence: DE)
  Receive Date: 20121202
  Receipt Date: 20121202
  Transmission Date: 20130627
  Serious: Yes (Other)
  Sender: FDA-Public Use
  Company Number: DE-TEVA-371727GER

PATIENT
  Sex: Female
  Weight: 60 kg

DRUGS (1)
  1. ALENDRONAT [Suspect]
     Indication: OSTEOPOROSIS

REACTIONS (1)
  - Leukocytoclastic vasculitis [Recovered/Resolved]
